FAERS Safety Report 17698355 (Version 4)
Quarter: 2020Q3

REPORT INFORMATION
  Report Type: Spontaneous
  Country: US (occurrence: US)
  Receive Date: 20200423
  Receipt Date: 20200825
  Transmission Date: 20201102
  Serious: No
  Sender: FDA-Public Use
  Company Number: US-PFIZER INC-2020163264

PATIENT
  Age: 84 Year
  Sex: Female

DRUGS (1)
  1. PREMARIN [Suspect]
     Active Substance: ESTROGENS, CONJUGATED
     Dosage: UNK (USES IT 3 TIMES A WEEK )

REACTIONS (3)
  - Hypoacusis [Unknown]
  - Off label use [Unknown]
  - Product use issue [Unknown]
